FAERS Safety Report 5101183-0 (Version None)
Quarter: 2006Q3

REPORT INFORMATION
  Report Type: 
  Country: None (occurrence: None)
  Receive Date: 20060911
  Receipt Date: 20060612
  Transmission Date: 20061208
  Serious: No
  Sender: FDA-Public Use
  Company Number: IT-AVENTIS-200616325GDDC

PATIENT
  Age: 48 Year
  Sex: Female

DRUGS (2)
  1. LANTUS [Suspect]
     Indication: DIABETES MELLITUS INSULIN-DEPENDENT
     Route: 058
     Dates: start: 20060222, end: 20060322
  2. ACTRAPID [Concomitant]
     Route: 058
     Dates: start: 19990101, end: 20060906

REACTIONS (1)
  - WEIGHT INCREASED [None]
